FAERS Safety Report 10180535 (Version 1)
Quarter: 2014Q2

REPORT INFORMATION
  Report Type: Spontaneous
  Country: US (occurrence: US)
  Receive Date: 20140519
  Receipt Date: 20140519
  Transmission Date: 20141212
  Serious: No
  Sender: FDA-Public Use
  Company Number: US-AMGEN INC.-USASP2014002859

PATIENT
  Age: 54 Year
  Sex: Female

DRUGS (4)
  1. PROLIA [Suspect]
     Indication: PRODUCT USED FOR UNKNOWN INDICATION
     Dosage: UNK
     Route: 065
     Dates: start: 201307
  2. CABERGOLINE [Concomitant]
  3. VITAMIN D                          /00107901/ [Concomitant]
  4. CALCIUM [Concomitant]

REACTIONS (6)
  - Toothache [Unknown]
  - Bruxism [Unknown]
  - Device failure [Unknown]
  - Tooth fracture [Unknown]
  - Fall [Unknown]
  - Musculoskeletal discomfort [Not Recovered/Not Resolved]
